FAERS Safety Report 14453480 (Version 1)
Quarter: 2018Q1

REPORT INFORMATION
  Report Type: Spontaneous
  Country: US (occurrence: US)
  Receive Date: 20180127
  Receipt Date: 20180127
  Transmission Date: 20180509
  Serious: Yes (Hospitalization)
  Sender: FDA-Public Use
  Company Number: None

PATIENT
  Age: 70 Year
  Sex: Female
  Weight: 67.5 kg

DRUGS (10)
  1. GENERIC HIGH BLOOD PRESSURE [Concomitant]
  2. CINNAMON. [Concomitant]
     Active Substance: CINNAMON
  3. SULFAMETHOXAZOLE TMP DS TABLET [Suspect]
     Active Substance: SULFAMETHOXAZOLE\TRIMETHOPRIM
     Indication: LOCALISED INFECTION
     Route: 048
     Dates: start: 20170925, end: 20171004
  4. CALCIUM [Concomitant]
     Active Substance: CALCIUM
  5. CULTURELLE [Concomitant]
     Active Substance: LACTOBACILLUS RHAMNOSUS
  6. ATORVASTATIN [Concomitant]
     Active Substance: ATORVASTATIN
  7. VITAMIN D [Concomitant]
     Active Substance: CHOLECALCIFEROL
  8. COQ10 [Concomitant]
     Active Substance: UBIDECARENONE
  9. MAGNESIUM [Concomitant]
     Active Substance: MAGNESIUM
  10. ASPIRIN. [Concomitant]
     Active Substance: ASPIRIN

REACTIONS (3)
  - Ulcer haemorrhage [None]
  - Melaena [None]
  - Haematochezia [None]

NARRATIVE: CASE EVENT DATE: 20171012
